FAERS Safety Report 19225899 (Version 1)
Quarter: 2021Q2

REPORT INFORMATION
  Report Type: Spontaneous
  Country: US (occurrence: US)
  Receive Date: 20210505
  Receipt Date: 20210505
  Transmission Date: 20210717
  Serious: No
  Sender: FDA-Public Use
  Company Number: US-ROCHE-2650995

PATIENT
  Age: 86 Year
  Sex: Female
  Weight: 38.59 kg

DRUGS (4)
  1. AVASTIN [Suspect]
     Active Substance: BEVACIZUMAB
     Indication: ADENOCARCINOMA
     Dosage: 100 MG/ 3 ML VIALS
     Route: 042
     Dates: start: 20200522
  2. IRESSA [Concomitant]
     Active Substance: GEFITINIB
     Indication: NON-SMALL CELL LUNG CANCER
     Route: 048
     Dates: start: 2015
  3. TAGRISSO [Concomitant]
     Active Substance: OSIMERTINIB
     Dates: start: 2018
  4. AVASTIN [Suspect]
     Active Substance: BEVACIZUMAB
     Indication: NON-SMALL CELL LUNG CANCER
     Dosage: 100 MG/ 4 ML VIALS
     Route: 065
     Dates: start: 2020

REACTIONS (3)
  - Intentional product use issue [Unknown]
  - Haemorrhage [Not Recovered/Not Resolved]
  - Off label use [Unknown]

NARRATIVE: CASE EVENT DATE: 2020
